FAERS Safety Report 17561158 (Version 4)
Quarter: 2021Q2

REPORT INFORMATION
  Report Type: Report from Study
  Country: US (occurrence: US)
  Receive Date: 20200302
  Receipt Date: 20210616
  Transmission Date: 20210716
  Serious: Yes (Other)
  Sender: FDA-Public Use
  Company Number: US-SHIRE-US202008063

PATIENT
  Age: 52 Year
  Sex: Female

DRUGS (11)
  1. PARATHYROID HORMONE [Suspect]
     Active Substance: PARATHYROID HORMONE
     Indication: HYPOPARATHYROIDISM
     Dosage: 75 MICROGRAM, QD
     Route: 065
     Dates: start: 201805
  2. PARATHYROID HORMONE [Suspect]
     Active Substance: PARATHYROID HORMONE
     Indication: POST PROCEDURAL HYPOTHYROIDISM
     Dosage: 50 MICROGRAM, BID
     Route: 065
  3. PARATHYROID HORMONE [Suspect]
     Active Substance: PARATHYROID HORMONE
     Dosage: 100 MICROGRAM, QD
     Route: 050
     Dates: start: 20180606
  4. PARATHYROID HORMONE [Suspect]
     Active Substance: PARATHYROID HORMONE
     Indication: HYPOPARATHYROIDISM
     Dosage: 75 MICROGRAM, QD
     Route: 065
     Dates: start: 201805
  5. PARATHYROID HORMONE [Suspect]
     Active Substance: PARATHYROID HORMONE
     Indication: POST PROCEDURAL HYPOTHYROIDISM
     Dosage: 50 MICROGRAM, BID
     Route: 065
  6. PARATHYROID HORMONE [Suspect]
     Active Substance: PARATHYROID HORMONE
     Dosage: 100 MICROGRAM, QD
     Route: 050
     Dates: start: 20180606
  7. CALCIUM CITRATE [Concomitant]
     Active Substance: CALCIUM CITRATE
     Dosage: UNK
     Route: 065
  8. PARATHYROID HORMONE [Suspect]
     Active Substance: PARATHYROID HORMONE
     Indication: POST PROCEDURAL HYPOTHYROIDISM
     Dosage: 50 MICROGRAM, BID
     Route: 065
  9. PARATHYROID HORMONE [Suspect]
     Active Substance: PARATHYROID HORMONE
     Dosage: 100 MICROGRAM, QD
     Route: 050
     Dates: start: 20180606
  10. CALCITRIOL. [Concomitant]
     Active Substance: CALCITRIOL
     Dosage: UNK
     Route: 065
  11. PARATHYROID HORMONE [Suspect]
     Active Substance: PARATHYROID HORMONE
     Indication: HYPOPARATHYROIDISM
     Dosage: 75 MICROGRAM, QD
     Route: 065
     Dates: start: 201805

REACTIONS (4)
  - Recalled product [Unknown]
  - Off label use [Unknown]
  - Hypocalcaemia [Unknown]
  - Product dose omission issue [Unknown]

NARRATIVE: CASE EVENT DATE: 20210330
